FAERS Safety Report 5805976-3 (Version None)
Quarter: 2008Q3

REPORT INFORMATION
  Report Type: 
  Country: None (occurrence: None)
  Receive Date: 20080710
  Receipt Date: 20080703
  Transmission Date: 20090109
  Serious: Yes (Other)
  Sender: FDA-Public Use
  Company Number: A0736050A

PATIENT
  Age: 46 Year
  Sex: Female

DRUGS (3)
  1. BUPROPION HYDROCHLORIDE [Suspect]
     Indication: DEPRESSION
     Dosage: 150MG THREE TIMES PER DAY
     Route: 048
  2. WELLBUTRIN [Suspect]
     Indication: DEPRESSION
     Dosage: 450MG UNKNOWN
     Route: 048
  3. SYNTHROID [Concomitant]

REACTIONS (5)
  - ASTHENIA [None]
  - MALAISE [None]
  - MEDICATION ERROR [None]
  - NEPHROLITHIASIS [None]
  - VOMITING IN PREGNANCY [None]
